FAERS Safety Report 4677299-X (Version None)
Quarter: 2005Q2

REPORT INFORMATION
  Report Type: 
  Country: None (occurrence: None)
  Receive Date: 20050526
  Receipt Date: 20050510
  Transmission Date: 20051028
  Serious: No
  Sender: FDA-Public Use
  Company Number: 05H-028-0298930-00

PATIENT

DRUGS (2)
  1. HEPARIN SODIUM [Suspect]
     Indication: ANTICOAGULANT THERAPY
     Dosage: 65 U/KG
  2. GLYCOPROTEIN IIB/IIIA ANTAGONIST [Concomitant]

REACTIONS (1)
  - VASCULAR PSEUDOANEURYSM [None]
